FAERS Safety Report 10241476 (Version 2)
Quarter: 2014Q2

REPORT INFORMATION
  Report Type: Report from Study
  Country: AU (occurrence: AU)
  Receive Date: 20140617
  Receipt Date: 20140625
  Transmission Date: 20141212
  Serious: Yes (Hospitalization)
  Sender: FDA-Public Use
  Company Number: AU-SA-2014SA074903

PATIENT
  Age: 77 Year
  Sex: Male

DRUGS (13)
  1. OXALIPLATIN [Suspect]
     Indication: COLON CANCER
     Route: 042
     Dates: start: 20140407, end: 20140527
  2. BEVACIZUMAB [Suspect]
     Indication: COLON CANCER
     Route: 042
     Dates: start: 20140407
  3. CALCIUM FOLINATE [Suspect]
     Indication: COLORECTAL CANCER METASTATIC
     Route: 042
     Dates: start: 20140407
  4. FLUOROURACIL [Suspect]
     Indication: COLON CANCER
     Dosage: ROUTE: INTRAVENEOUS BOLUS?DOSE: 600/4000 MG
     Dates: start: 20140407
  5. DEXAMETHASONE [Concomitant]
     Dates: start: 20140407
  6. DEXAMETHASONE [Concomitant]
     Dates: start: 20140507
  7. PALONOSETRON [Concomitant]
     Dates: start: 20140407
  8. FUROSEMIDE [Concomitant]
     Dates: start: 20140331
  9. PANADOL OSTEO [Concomitant]
     Dates: start: 2013
  10. TARGIN [Concomitant]
     Dosage: DOSE: 10/5 MG
     Dates: start: 20140327
  11. HEPARIN SODIUM [Concomitant]
     Dates: start: 20140323
  12. CITALOPRAM [Concomitant]
     Dates: start: 20140323
  13. SODIUM PHOSPHATE DIBASIC [Concomitant]
     Dates: start: 20140323

REACTIONS (1)
  - Fall [Recovered/Resolved]
